FAERS Safety Report 20007442 (Version 1)
Quarter: 2021Q4

REPORT INFORMATION
  Report Type: Spontaneous
  Country: CO (occurrence: CO)
  Receive Date: 20211028
  Receipt Date: 20211028
  Transmission Date: 20220304
  Serious: Yes (Life-Threatening, Hospitalization)
  Sender: FDA-Public Use
  Company Number: CO-DRREDDYS-SPO/COL/21/0143123

PATIENT
  Age: 53 Year
  Sex: Female

DRUGS (3)
  1. FULVESTRANT [Suspect]
     Active Substance: FULVESTRANT
     Indication: Hormone receptor positive HER2 negative breast cancer
     Dosage: DURATION: 3 WEEKS
     Dates: start: 20210825
  2. LOSARTAN [Concomitant]
     Active Substance: LOSARTAN
     Indication: Product used for unknown indication
     Dates: start: 201101
  3. AMLODIPINE [Concomitant]
     Active Substance: AMLODIPINE BESYLATE
     Indication: Product used for unknown indication
     Dates: start: 201101

REACTIONS (2)
  - Central nervous system lesion [Recovering/Resolving]
  - Metastases to liver [Recovering/Resolving]

NARRATIVE: CASE EVENT DATE: 20210912
